FAERS Safety Report 6313642-3 (Version None)
Quarter: 2009Q3

REPORT INFORMATION
  Report Type: 
  Country: None (occurrence: None)
  Receive Date: 20090818
  Receipt Date: 20090811
  Transmission Date: 20100115
  Serious: Yes (Other)
  Sender: FDA-Public Use
  Company Number: FR-AMGEN-UK355397

PATIENT

DRUGS (2)
  1. VECTIBIX [Suspect]
     Indication: COLORECTAL CANCER
     Route: 042
     Dates: start: 20090505
  2. COZAAR [Concomitant]
     Route: 065

REACTIONS (3)
  - FOLLICULITIS [None]
  - RASH [None]
  - SEBORRHOEIC DERMATITIS [None]
